FAERS Safety Report 7953815-7 (Version None)
Quarter: 2011Q4

REPORT INFORMATION
  Report Type: 
  Country: None (occurrence: None)
  Receive Date: 20111202
  Receipt Date: 20111121
  Transmission Date: 20120403
  Serious: Yes (Other)
  Sender: FDA-Public Use
  Company Number: CA-JNJFOC-20111110164

PATIENT
  Sex: Male
  Weight: 116 kg

DRUGS (5)
  1. VITAMIN D [Concomitant]
  2. ADVAIR DISKUS 100/50 [Concomitant]
  3. INSULIN [Concomitant]
  4. REMICADE [Suspect]
     Indication: COLITIS ULCERATIVE
     Dates: start: 20081002
  5. LIPITOR [Concomitant]

REACTIONS (2)
  - BLOOD GLUCOSE INCREASED [None]
  - ASTHMA [None]
